FAERS Safety Report 10035512 (Version 2)
Quarter: 2014Q2

REPORT INFORMATION
  Report Type: Spontaneous
  Country: US (occurrence: US)
  Receive Date: 20140325
  Receipt Date: 20140509
  Transmission Date: 20141212
  Serious: No
  Sender: FDA-Public Use
  Company Number: US-PFIZER INC-2014080813

PATIENT
  Age: 45 Year
  Sex: Female
  Weight: 77.1 kg

DRUGS (9)
  1. GENOTROPIN MQ [Suspect]
     Indication: DWARFISM
     Dosage: 0.6 MG, DAILY
     Route: 058
     Dates: start: 20130919
  2. GENOTROPIN MQ [Suspect]
  3. GENOTROPIN MQ [Suspect]
  4. CORTEF [Concomitant]
     Dosage: 10 -10 MG
  5. MINOCYCLINE [Concomitant]
     Dosage: 513-100MG
  6. ESTRADIOL [Concomitant]
     Dosage: B/8861 -1 MG
  7. WELCHOL [Concomitant]
     Dosage: C01-625MG
  8. LEVOTHYROXINE [Concomitant]
     Indication: HYPOTHYROIDISM
     Dosage: 88 UG, 1X/DAY
  9. HYDROCORTISONE [Concomitant]
     Indication: ADRENAL INSUFFICIENCY
     Dosage: 10 MG, 1X/DAY

REACTIONS (5)
  - Ocular discomfort [Unknown]
  - Skin discolouration [Unknown]
  - Toothache [Unknown]
  - Impaired healing [Unknown]
  - Headache [Unknown]
